FAERS Safety Report 7214542-7 (Version None)
Quarter: 2011Q1

REPORT INFORMATION
  Report Type: 
  Country: None (occurrence: None)
  Receive Date: 20110107
  Receipt Date: 20101231
  Transmission Date: 20110831
  Serious: Yes (Death)
  Sender: FDA-Public Use
  Company Number: US-PFIZER INC-2011002684

PATIENT
  Age: 43 Year
  Sex: Male

DRUGS (3)
  1. DOXEPIN HCL [Suspect]
     Route: 048
  2. QUETIAPINE [Suspect]
     Route: 048
  3. TRAZODONE [Suspect]
     Route: 048

REACTIONS (1)
  - COMPLETED SUICIDE [None]
